FAERS Safety Report 14974166 (Version 1)
Quarter: 2018Q2

REPORT INFORMATION
  Report Type: Spontaneous
  Country: VE (occurrence: VE)
  Receive Date: 20180605
  Receipt Date: 20180605
  Transmission Date: 20180711
  Serious: Yes (Death, Congenital Anomaly, Other)
  Sender: FDA-Public Use
  Company Number: VE-AKORN PHARMACEUTICALS-2018AKN00726

PATIENT
  Sex: Male
  Weight: 1.54 kg

DRUGS (1)
  1. ISOTRETINOIN. [Suspect]
     Active Substance: ISOTRETINOIN
     Route: 064

REACTIONS (13)
  - Foetal exposure during pregnancy [Unknown]
  - Cerebral ventricle dilatation [Not Recovered/Not Resolved]
  - Congenital central nervous system anomaly [Not Recovered/Not Resolved]
  - Hydrocephalus [Not Recovered/Not Resolved]
  - Microtia [Not Recovered/Not Resolved]
  - Neonatal respiratory distress syndrome [Not Recovered/Not Resolved]
  - Micrognathia [Not Recovered/Not Resolved]
  - Hypothermia neonatal [Not Recovered/Not Resolved]
  - Cardio-respiratory arrest neonatal [Fatal]
  - Hypertelorism of orbit [Not Recovered/Not Resolved]
  - Microcephaly [Not Recovered/Not Resolved]
  - Teratogenicity [Not Recovered/Not Resolved]
  - Dysmorphism [Not Recovered/Not Resolved]
